FAERS Safety Report 8301550-8 (Version None)
Quarter: 2012Q2

REPORT INFORMATION
  Report Type: 
  Country: None (occurrence: None)
  Receive Date: 20120420
  Receipt Date: 20120418
  Transmission Date: 20120825
  Serious: Yes (Death, Hospitalization)
  Sender: FDA-Public Use
  Company Number: PHHY2012TN032955

PATIENT
  Age: 63 Year
  Sex: Female

DRUGS (4)
  1. VALSARTAN [Concomitant]
     Indication: HYPERTENSION
  2. ISOSORBIDE DINITRATE [Concomitant]
     Indication: CORONARY ARTERY INSUFFICIENCY
  3. FUROSEMIDE [Suspect]
     Indication: HYPERTENSION
     Dosage: 20 MG, UNK
  4. AMIODARONE HCL [Concomitant]
     Indication: ATRIAL FIBRILLATION

REACTIONS (3)
  - CARDIAC ARREST [None]
  - PANCREATITIS ACUTE [None]
  - ABDOMINAL PAIN [None]
